FAERS Safety Report 8533784-1 (Version None)
Quarter: 2012Q3

REPORT INFORMATION
  Report Type: 
  Country: None (occurrence: None)
  Receive Date: 20120724
  Receipt Date: 20120717
  Transmission Date: 20120928
  Serious: Yes (Other)
  Sender: FDA-Public Use
  Company Number: US-US-EMD SERONO, INC.-7138813

PATIENT
  Sex: Female

DRUGS (5)
  1. LAMOTRIGINE [Concomitant]
     Indication: PRODUCT USED FOR UNKNOWN INDICATION
     Route: 048
     Dates: start: 20080101
  2. MS CONTIN [Concomitant]
     Indication: PRODUCT USED FOR UNKNOWN INDICATION
     Dates: start: 20100101
  3. CELEXA [Concomitant]
     Indication: PRODUCT USED FOR UNKNOWN INDICATION
     Dates: start: 20060101
  4. REBIF [Suspect]
     Indication: MULTIPLE SCLEROSIS
     Dates: end: 20110904
  5. METHADONE HCL [Concomitant]
     Indication: NEURALGIA
     Dates: start: 20070101

REACTIONS (2)
  - SKIN ULCER [None]
  - STAPHYLOCOCCAL INFECTION [None]
